FAERS Safety Report 5541609-1 (Version None)
Quarter: 2007Q4

REPORT INFORMATION
  Report Type: 
  Country: None (occurrence: None)
  Receive Date: 20071210
  Receipt Date: 20071130
  Transmission Date: 20080405
  Serious: Yes (Life-Threatening, Hospitalization)
  Sender: FDA-Public Use
  Company Number: US-JNJFOC-20060201363

PATIENT
  Sex: Female
  Weight: 104.33 kg

DRUGS (21)
  1. DOXIL [Suspect]
     Route: 042
  2. DOXIL [Suspect]
     Indication: MULTIPLE MYELOMA
     Route: 042
  3. THALIDOMIDE [Suspect]
     Route: 048
  4. THALIDOMIDE [Suspect]
     Indication: MULTIPLE MYELOMA
     Route: 048
  5. DECADRON [Suspect]
     Indication: MULTIPLE MYELOMA
     Route: 048
  6. NYSTATIN [Concomitant]
     Indication: PROPHYLAXIS
     Dosage: AS NEEDED, SWISH
     Route: 048
  7. VICODIN [Concomitant]
  8. COUMADIN [Concomitant]
     Route: 048
  9. COUMADIN [Concomitant]
     Indication: THROMBOSIS PROPHYLAXIS
     Route: 048
  10. ACYCLOVIR [Concomitant]
  11. ACYCLOVIR [Concomitant]
     Indication: INFECTION PROPHYLAXIS
  12. ACID REDUCERS [Concomitant]
  13. BACTRIM DS [Concomitant]
     Indication: INFECTION PROPHYLAXIS
     Route: 048
  14. DIFLUCAN [Concomitant]
  15. COMPAZINE [Concomitant]
     Indication: PROPHYLAXIS OF NAUSEA AND VOMITING
     Dosage: AS NEEDED
     Route: 048
  16. CLACK'S SOLUTION [Concomitant]
  17. AREDIA [Concomitant]
     Indication: PROPHYLAXIS
     Route: 042
  18. KYTRIL [Concomitant]
     Indication: PROPHYLAXIS OF NAUSEA AND VOMITING
     Route: 042
  19. BENADRYL [Concomitant]
     Indication: PROPHYLAXIS
     Route: 042
  20. SENOKOT [Concomitant]
     Indication: CONSTIPATION
     Dosage: 2-4 TABLETS DAILY AS NEEDED
     Route: 048
  21. ARANESP [Concomitant]
     Indication: ANAEMIA
     Route: 058

REACTIONS (2)
  - DIABETIC KETOACIDOSIS [None]
  - PANCREATITIS [None]
